FAERS Safety Report 10526829 (Version 2)
Quarter: 2014Q4

REPORT INFORMATION
  Report Type: Spontaneous
  Country: US (occurrence: US)
  Receive Date: 20141020
  Receipt Date: 20141107
  Transmission Date: 20150528
  Serious: Yes (Hospitalization)
  Sender: FDA-Public Use
  Company Number: US-009507513-1410USA007928

PATIENT
  Age: 59 Year
  Sex: Male

DRUGS (1)
  1. DULERA [Suspect]
     Active Substance: FORMOTEROL FUMARATE DIHYDRATE\MOMETASONE FUROATE
     Indication: CHRONIC OBSTRUCTIVE PULMONARY DISEASE
     Dosage: 200/5 MICROGRAMS, TWO PUFFS TWICE DAILY
     Route: 055
     Dates: start: 2009

REACTIONS (2)
  - Pneumonia [Unknown]
  - Product quality issue [Unknown]

NARRATIVE: CASE EVENT DATE: 20140422
